FAERS Safety Report 14025914 (Version 1)
Quarter: 2017Q3

REPORT INFORMATION
  Report Type: Report from Study
  Country: CO (occurrence: CO)
  Receive Date: 20170929
  Receipt Date: 20170929
  Transmission Date: 20171128
  Serious: Yes (Death, Other)
  Sender: FDA-Public Use
  Company Number: CO-ELI_LILLY_AND_COMPANY-CO201709011151

PATIENT
  Age: 32 Year
  Sex: Female

DRUGS (1)
  1. CETUXIMAB. [Suspect]
     Active Substance: CETUXIMAB
     Indication: SQUAMOUS CELL CARCINOMA OF HEAD AND NECK
     Dosage: 400 MG/M2, UNKNOWN
     Route: 065
     Dates: start: 20170331

REACTIONS (4)
  - Decreased appetite [Unknown]
  - Cardiac arrest [Fatal]
  - Tonsillitis [Unknown]
  - Haematemesis [Unknown]

NARRATIVE: CASE EVENT DATE: 2017
